FAERS Safety Report 7354720-X (Version None)
Quarter: 2011Q1

REPORT INFORMATION
  Report Type: 
  Country: None (occurrence: None)
  Receive Date: 20110316
  Receipt Date: 20110303
  Transmission Date: 20110831
  Serious: Yes (Hospitalization)
  Sender: FDA-Public Use
  Company Number: US-ACTELION-A-NJ2011-43752

PATIENT

DRUGS (6)
  1. TRACLEER [Suspect]
     Indication: PULMONARY ARTERIAL HYPERTENSION
     Dosage: UNK
     Route: 048
     Dates: start: 20101014, end: 20100101
  2. ADVAIR DISKUS 100/50 [Concomitant]
  3. FUROSEMIDE [Concomitant]
  4. CALCIUM CHANNEL BLOCKERS [Concomitant]
  5. SILDENAFIL [Concomitant]
  6. COUMADIN [Concomitant]

REACTIONS (1)
  - BACK PAIN [None]
